FAERS Safety Report 8870487 (Version 1)
Quarter: 2012Q4

REPORT INFORMATION
  Report Type: Spontaneous
  Country: US (occurrence: None)
  Receive Date: 20121026
  Receipt Date: 20121026
  Transmission Date: 20130627
  Serious: Yes (Other)
  Sender: FDA-Public Use
  Company Number: None

PATIENT
  Age: 65 Year
  Sex: Female

DRUGS (1)
  1. ENBREL 50 AMGEN [Suspect]
     Indication: RA
     Route: 058
     Dates: start: 20120828, end: 20121004

REACTIONS (4)
  - Paraesthesia [None]
  - Tendon disorder [None]
  - Muscle spasms [None]
  - Mobility decreased [None]
